FAERS Safety Report 11728487 (Version 1)
Quarter: 2015Q4

REPORT INFORMATION
  Report Type: Spontaneous
  Country: US (occurrence: US)
  Receive Date: 20151112
  Receipt Date: 20151112
  Transmission Date: 20160304
  Serious: No
  Sender: FDA-Public Use
  Company Number: US-SA-2015SA177508

PATIENT
  Sex: Female

DRUGS (1)
  1. KYNAMRO [Suspect]
     Active Substance: MIPOMERSEN SODIUM
     Indication: HYPERCHOLESTEROLAEMIA
     Route: 058
     Dates: start: 20150909, end: 201510

REACTIONS (1)
  - Renal disorder [Unknown]

NARRATIVE: CASE EVENT DATE: 2015
